FAERS Safety Report 25846676 (Version 3)
Quarter: 2025Q4

REPORT INFORMATION
  Report Type: Spontaneous
  Country: US (occurrence: US)
  Receive Date: 20250925
  Receipt Date: 20251201
  Transmission Date: 20260117
  Serious: Yes (Hospitalization, Other)
  Sender: MYLAN
  Company Number: US-MYLANLABS-2025M1079171

PATIENT
  Sex: Male
  Weight: 145.15 kg

DRUGS (3)
  1. BREYNA [Suspect]
     Active Substance: BUDESONIDE\FORMOTEROL FUMARATE
     Indication: Occupational asthma
     Dosage: 320/9 MICROGRAM, BID (FOUR PUFFS A DAY, 2 IN MORNING, 2 IN EVENING, APPROXIMATELY 12 HOURS APART)
  2. BREYNA [Suspect]
     Active Substance: BUDESONIDE\FORMOTEROL FUMARATE
     Dosage: 320/9 MICROGRAM, BID (FOUR PUFFS A DAY, 2 IN MORNING, 2 IN EVENING, APPROXIMATELY 12 HOURS APART)
  3. ALBUTEROL [Concomitant]
     Active Substance: ALBUTEROL
     Dosage: UNK, PRN (AS NEEDED)

REACTIONS (7)
  - Hospitalisation [Unknown]
  - Incorrect dose administered by device [Unknown]
  - Asthma [Recovered/Resolved]
  - Product substitution issue [Unknown]
  - Drug ineffective [Unknown]
  - Overdose [Unknown]
  - Device delivery system issue [Unknown]
